FAERS Safety Report 6076461-1 (Version None)
Quarter: 2009Q1

REPORT INFORMATION
  Report Type: 
  Country: None (occurrence: None)
  Receive Date: 20090213
  Receipt Date: 20090210
  Transmission Date: 20090719
  Serious: Yes (Other)
  Sender: FDA-Public Use
  Company Number: US-JNJFOC-20080906335

PATIENT
  Sex: Female
  Weight: 94.35 kg

DRUGS (8)
  1. LEVAQUIN [Suspect]
     Indication: UPPER RESPIRATORY TRACT INFECTION
     Route: 048
  2. ENBREL [Concomitant]
     Indication: PSORIASIS
     Route: 065
  3. ENBREL [Concomitant]
     Indication: RHEUMATOID ARTHRITIS
     Route: 065
  4. RIDAURA [Concomitant]
     Indication: PSORIASIS
     Route: 065
  5. RIDAURA [Concomitant]
     Indication: RHEUMATOID ARTHRITIS
     Route: 065
  6. RELAFEN [Concomitant]
     Indication: ARTHRALGIA
     Route: 065
  7. DIOVAN [Concomitant]
     Indication: BLOOD PRESSURE
     Route: 065
  8. CYTOTEC [Concomitant]
     Indication: GASTROINTESTINAL DISORDER THERAPY
     Route: 065

REACTIONS (2)
  - ARTHRALGIA [None]
  - LIGAMENT RUPTURE [None]
